FAERS Safety Report 5762776-0 (Version None)
Quarter: 2008Q2

REPORT INFORMATION
  Report Type: 
  Country: None (occurrence: None)
  Receive Date: 20080609
  Receipt Date: 20080530
  Transmission Date: 20081010
  Serious: Yes (Hospitalization)
  Sender: FDA-Public Use
  Company Number: BE-GENENTECH-260196

PATIENT
  Age: 50 Year
  Sex: Male
  Weight: 58 kg

DRUGS (3)
  1. MABTHERA [Suspect]
     Indication: RHEUMATOID ARTHRITIS
     Dosage: UNK, 2/WEEK
     Route: 042
     Dates: start: 20071001, end: 20071001
  2. ARAVA [Concomitant]
     Indication: DRUG USE FOR UNKNOWN INDICATION
     Dates: start: 20071101, end: 20080101
  3. ARCOXIA [Concomitant]
     Indication: DRUG USE FOR UNKNOWN INDICATION
     Dates: start: 20071001, end: 20071001

REACTIONS (1)
  - MULTIPLE MYELOMA [None]
